FAERS Safety Report 22275212 (Version 2)
Quarter: 2023Q4

REPORT INFORMATION
  Report Type: Spontaneous
  Country: MX (occurrence: MX)
  Receive Date: 20230502
  Receipt Date: 20231006
  Transmission Date: 20240110
  Serious: Yes (Hospitalization)
  Sender: FDA-Public Use
  Company Number: MX-BAYER-2023A060512

PATIENT
  Age: 21 Year
  Sex: Female

DRUGS (1)
  1. ULTRAVIST [Suspect]
     Active Substance: IOPROMIDE
     Indication: Computerised tomogram
     Dosage: 50 ML, ONCE
     Route: 042
     Dates: start: 20230420

REACTIONS (4)
  - Contrast media allergy [None]
  - Pruritus [None]
  - Throat irritation [None]
  - Tachycardia [None]

NARRATIVE: CASE EVENT DATE: 20230420
